FAERS Safety Report 6800977-0 (Version None)
Quarter: 2010Q2

REPORT INFORMATION
  Report Type: 
  Country: None (occurrence: None)
  Receive Date: 20100629
  Receipt Date: 20100625
  Transmission Date: 20101027
  Serious: Yes (Hospitalization, Other)
  Sender: FDA-Public Use
  Company Number: US-B.I. PHARMACEUTICALS,INC./RIDGEFIELD-2010-BP-07188BP

PATIENT
  Age: 75 Year
  Sex: Female

DRUGS (3)
  1. MICARDIS [Suspect]
  2. SYNTHROID [Concomitant]
     Indication: THYROID DISORDER
     Dosage: 0.175 NR
  3. ZOCOR [Concomitant]
     Indication: BLOOD CHOLESTEROL INCREASED

REACTIONS (2)
  - GASTROINTESTINAL NECROSIS [None]
  - SEPTIC SHOCK [None]
